FAERS Safety Report 4679819-8 (Version None)
Quarter: 2005Q2

REPORT INFORMATION
  Report Type: 
  Country: None (occurrence: None)
  Receive Date: 20050531
  Receipt Date: 20050517
  Transmission Date: 20051028
  Serious: Yes (Other)
  Sender: FDA-Public Use
  Company Number: B0382219A

PATIENT
  Age: 33 Year
  Sex: Female

DRUGS (3)
  1. EPIVIR [Suspect]
  2. AZATHIOPRINE [Suspect]
  3. CYCLOSPORINE [Suspect]

REACTIONS (5)
  - CAESAREAN SECTION [None]
  - CHOLESTASIS [None]
  - DRUG EXPOSURE DURING PREGNANCY [None]
  - PREGNANCY [None]
  - PRURITUS [None]
